FAERS Safety Report 6577019-8 (Version None)
Quarter: 2010Q1

REPORT INFORMATION
  Report Type: 
  Country: None (occurrence: None)
  Receive Date: 20100210
  Receipt Date: 20100202
  Transmission Date: 20100710
  Serious: Yes (Other)
  Sender: FDA-Public Use
  Company Number: US-BAYER-201013089NA

PATIENT

DRUGS (1)
  1. AVELOX [Suspect]
     Indication: PREOPERATIVE CARE
     Route: 048

REACTIONS (1)
  - LOSS OF CONSCIOUSNESS [None]
